FAERS Safety Report 8615639-7 (Version None)
Quarter: 2012Q3

REPORT INFORMATION
  Report Type: 
  Country: None (occurrence: None)
  Receive Date: 20120823
  Receipt Date: 20120813
  Transmission Date: 20120928
  Serious: Yes (Hospitalization)
  Sender: FDA-Public Use
  Company Number: FR-JNJFOC-20120805700

PATIENT
  Sex: Male

DRUGS (13)
  1. RAMIPRIL [Concomitant]
  2. VIT K ANTAGONISTS [Concomitant]
  3. FLUINDIONE [Concomitant]
  4. BISOPROLOL FUMARATE [Concomitant]
  5. XARELTO [Suspect]
     Indication: STENT PLACEMENT
     Route: 065
     Dates: start: 20120720
  6. LASIX [Concomitant]
  7. XARELTO [Suspect]
     Indication: ATRIAL FIBRILLATION
     Route: 065
     Dates: start: 20120720
  8. PANTOPRAZOLE [Concomitant]
  9. POTASSIUM CHLORIDE [Concomitant]
  10. ASPIRIN [Concomitant]
  11. XARELTO [Suspect]
     Indication: CEREBROVASCULAR ACCIDENT PROPHYLAXIS
     Route: 065
     Dates: start: 20120720
  12. PLAVIX [Concomitant]
  13. ALLOPURINOL [Concomitant]

REACTIONS (2)
  - THROMBOSIS IN DEVICE [None]
  - CARDIAC FAILURE [None]
